FAERS Safety Report 13932361 (Version 1)
Quarter: 2017Q3

REPORT INFORMATION
  Report Type: Report from Study
  Country: DE (occurrence: DE)
  Receive Date: 20170904
  Receipt Date: 20170904
  Transmission Date: 20171127
  Serious: Yes (Hospitalization)
  Sender: FDA-Public Use
  Company Number: DE-JNJFOC-20170901239

PATIENT
  Age: 91 Year
  Sex: Female
  Weight: 66 kg

DRUGS (1)
  1. XARELTO [Suspect]
     Active Substance: RIVAROXABAN
     Indication: ATRIAL FIBRILLATION
     Route: 048
     Dates: start: 20130227

REACTIONS (2)
  - Cystitis [Unknown]
  - Haematuria [Unknown]

NARRATIVE: CASE EVENT DATE: 20170205
